FAERS Safety Report 4627540-4 (Version None)
Quarter: 2005Q2

REPORT INFORMATION
  Report Type: 
  Country: None (occurrence: None)
  Receive Date: 20050405
  Receipt Date: 20050324
  Transmission Date: 20051028
  Serious: Yes (Life-Threatening, Hospitalization)
  Sender: FDA-Public Use
  Company Number: 2004-0007601

PATIENT
  Age: 55 Year
  Sex: Male
  Weight: 67.1 kg

DRUGS (8)
  1. ADEFOVIR DIPIVOXIL (ADEFOVIR DIPIVOXIL) [Suspect]
     Indication: HEPATITIS B
     Dosage: 10 MG, 1 IN 1 D, ORAL
     Route: 048
     Dates: start: 20030310, end: 20040411
  2. EPIVIR [Suspect]
     Indication: HEPATITIS B
     Dosage: 150 MG
     Dates: start: 20030310, end: 20040411
  3. SELEGILINE HCL [Suspect]
     Indication: COGNITIVE DISORDER
     Dosage: 1 IN 1 D, TRANSDERMAL
     Route: 062
     Dates: start: 20031014, end: 20040330
  4. SELEGILINE HCL [Suspect]
     Indication: HIV INFECTION
     Dosage: 1 IN 1 D, TRANSDERMAL
     Route: 062
     Dates: start: 20031014, end: 20040330
  5. SELEGELINE HYDROCHLORIDE [Suspect]
     Indication: COGNITIVE DISORDER
     Dosage: 1 MG, 1 IN 1 D, TRANSDERMAL
     Route: 062
     Dates: start: 20040330, end: 20040411
  6. SELEGELINE HYDROCHLORIDE [Suspect]
     Indication: HIV INFECTION
     Dosage: 1 MG, 1 IN 1 D, TRANSDERMAL
     Route: 062
     Dates: start: 20040330, end: 20040411
  7. ZIAGEN [Concomitant]
  8. SUSTIVA [Concomitant]

REACTIONS (28)
  - ANION GAP INCREASED [None]
  - ASTHENIA [None]
  - ATELECTASIS [None]
  - BACTERIA URINE IDENTIFIED [None]
  - BILIRUBIN URINE [None]
  - CELLS IN URINE [None]
  - COORDINATION ABNORMAL [None]
  - FALL [None]
  - HAEMANGIOMA OF LIVER [None]
  - INCONTINENCE [None]
  - LEUKOCYTOSIS [None]
  - LUNG INFILTRATION [None]
  - MACULOPATHY [None]
  - METABOLIC ACIDOSIS [None]
  - MYOPATHY [None]
  - NEPHROLITHIASIS [None]
  - NITRITE URINE PRESENT [None]
  - PCO2 DECREASED [None]
  - PROTEIN URINE PRESENT [None]
  - RED BLOOD CELLS URINE [None]
  - RENAL FAILURE ACUTE [None]
  - SCAR [None]
  - SEPSIS [None]
  - SOFT TISSUE DISORDER [None]
  - URINE KETONE BODY PRESENT [None]
  - URINE LEUKOCYTE ESTERASE POSITIVE [None]
  - WHITE BLOOD CELL COUNT INCREASED [None]
  - WHITE BLOOD CELLS URINE POSITIVE [None]
